FAERS Safety Report 6075473-1 (Version None)
Quarter: 2009Q1

REPORT INFORMATION
  Report Type: 
  Country: None (occurrence: None)
  Receive Date: 20090212
  Receipt Date: 20090203
  Transmission Date: 20090719
  Serious: Yes (Other)
  Sender: FDA-Public Use
  Company Number: B0556692A

PATIENT
  Age: 3 Year
  Sex: Female

DRUGS (4)
  1. ALKERAN [Suspect]
     Indication: NEUROBLASTOMA
     Route: 042
  2. ETOPOSIDE [Suspect]
     Indication: NEUROBLASTOMA
  3. CARBOPLATIN [Suspect]
     Indication: NEUROBLASTOMA
  4. STEM CELL TRANSPLANT [Concomitant]

REACTIONS (4)
  - CLOSTRIDIUM DIFFICILE COLITIS [None]
  - CYTOMEGALOVIRUS INFECTION [None]
  - DIARRHOEA [None]
  - PERICARDIAL EFFUSION [None]
